FAERS Safety Report 25178442 (Version 1)
Quarter: 2025Q2

REPORT INFORMATION
  Report Type: Spontaneous
  Country: CN (occurrence: CN)
  Receive Date: 20250409
  Receipt Date: 20250409
  Transmission Date: 20250716
  Serious: Yes (Hospitalization)
  Sender: Kenvue
  Company Number: CN-KENVUE-20250309391

PATIENT

DRUGS (5)
  1. CHILDRENS MOTRIN [Suspect]
     Active Substance: IBUPROFEN
     Indication: Cooling therapy
     Dosage: 10 MILLILITER, ONCE A DAY
     Route: 048
     Dates: start: 20250322, end: 20250323
  2. CHILDRENS MOTRIN [Suspect]
     Active Substance: IBUPROFEN
     Indication: Pyrexia
  3. CHILDRENS MOTRIN [Suspect]
     Active Substance: IBUPROFEN
     Indication: Cough
  4. CHILDRENS MOTRIN [Suspect]
     Active Substance: IBUPROFEN
     Indication: Productive cough
  5. ERYTHROMYCIN ESTOLATE [Suspect]
     Active Substance: ERYTHROMYCIN ESTOLATE
     Indication: Infection
     Route: 048
     Dates: start: 20250322, end: 20250323

REACTIONS (2)
  - Dermatitis allergic [Recovering/Resolving]
  - Product use in unapproved indication [Unknown]

NARRATIVE: CASE EVENT DATE: 20250322
